FAERS Safety Report 4267209-1 (Version None)
Quarter: 2004Q1

REPORT INFORMATION
  Report Type: 
  Country: None (occurrence: None)
  Receive Date: 20040107
  Receipt Date: 20031226
  Transmission Date: 20041129
  Serious: Yes (Other)
  Sender: FDA-Public Use
  Company Number: TCI2003A03943

PATIENT
  Age: 50 Year
  Sex: Male

DRUGS (4)
  1. ACTOS [Suspect]
     Indication: DIABETES MELLITUS NON-INSULIN-DEPENDENT
     Dosage: 30 MG (30 MG, 1 IN 1 D)
     Route: 048
     Dates: start: 20000129, end: 20011208
  2. BLOPRESS TABLETS 8 (CANDESARTAN CILEXETIL) [Concomitant]
  3. NILVADIPINE [Concomitant]
  4. TOCOPHERYL NICOTINATE [Concomitant]

REACTIONS (2)
  - CHEST DISCOMFORT [None]
  - VENTRICULAR EXTRASYSTOLES [None]
